FAERS Safety Report 8496758-5 (Version None)
Quarter: 2012Q3

REPORT INFORMATION
  Report Type: 
  Country: None (occurrence: None)
  Receive Date: 20120709
  Receipt Date: 20120704
  Transmission Date: 20120928
  Serious: Yes (Death)
  Sender: FDA-Public Use
  Company Number: CA-ROCHE-1084209

PATIENT
  Age: 21 Year
  Sex: Male
  Weight: 68.554 kg

DRUGS (8)
  1. FASTURTEC [Concomitant]
     Route: 065
  2. HYDROMORPHONE HCL [Concomitant]
     Route: 065
  3. ALLOPURINOL [Concomitant]
     Route: 065
  4. RITUXAN [Suspect]
     Indication: PRODUCT USED FOR UNKNOWN INDICATION
     Dosage: ONCE
     Route: 042
  5. DIPHENHYDRAMINE [Concomitant]
     Route: 065
  6. MEPERIDINE HCL [Concomitant]
     Route: 065
  7. ONDANSETRON [Concomitant]
     Route: 065
  8. METOCLOPRAMIDE [Concomitant]
     Route: 065

REACTIONS (8)
  - BLOOD LACTATE DEHYDROGENASE INCREASED [None]
  - HYPERTENSION [None]
  - PH BODY FLUID DECREASED [None]
  - TACHYCARDIA [None]
  - URTICARIA [None]
  - CHILLS [None]
  - VITAL FUNCTIONS ABNORMAL [None]
  - ACIDOSIS [None]
